FAERS Safety Report 14119114 (Version 1)
Quarter: 2017Q4

REPORT INFORMATION
  Report Type: Spontaneous
  Country: US (occurrence: US)
  Receive Date: 20171023
  Receipt Date: 20171023
  Transmission Date: 20180321
  Serious: No
  Sender: FDA-Public Use
  Company Number: None

PATIENT
  Age: 47 Year
  Sex: Female
  Weight: 53.1 kg

DRUGS (2)
  1. FLUOROURACIL. [Suspect]
     Active Substance: FLUOROURACIL
     Indication: ACTINIC KERATOSIS
     Dosage: STRENGTH - 5% G GRAM(S)
     Route: 061
     Dates: start: 20170902, end: 20170922
  2. JUNEL BCP [Concomitant]

REACTIONS (1)
  - Scar [None]

NARRATIVE: CASE EVENT DATE: 20170928
